FAERS Safety Report 13857670 (Version 1)
Quarter: 2017Q3

REPORT INFORMATION
  Report Type: Spontaneous
  Country: US (occurrence: US)
  Receive Date: 20170811
  Receipt Date: 20170811
  Transmission Date: 20171127
  Serious: Yes (Other)
  Sender: FDA-Public Use
  Company Number: US-TEVA-796053USA

PATIENT
  Age: 36 Year
  Sex: Female

DRUGS (1)
  1. COPAXONE [Suspect]
     Active Substance: GLATIRAMER ACETATE
     Indication: MULTIPLE SCLEROSIS
     Dosage: UNKNOWN FORM STRENGTH
     Route: 065

REACTIONS (12)
  - Asthenia [Unknown]
  - Memory impairment [Unknown]
  - Sciatica [Unknown]
  - Multiple sclerosis relapse [Unknown]
  - Delirium [Unknown]
  - Normal newborn [Unknown]
  - Balance disorder [Unknown]
  - Insomnia [Unknown]
  - Spinal cord disorder [Unknown]
  - Maternal exposure before pregnancy [Recovered/Resolved]
  - Fatigue [Unknown]
  - Muscle spasticity [Unknown]
